FAERS Safety Report 17008457 (Version 3)
Quarter: 2020Q3

REPORT INFORMATION
  Report Type: Spontaneous
  Country: FR (occurrence: FR)
  Receive Date: 20191108
  Receipt Date: 20200721
  Transmission Date: 20201102
  Serious: Yes (Life-Threatening, Hospitalization, Other)
  Sender: FDA-Public Use
  Company Number: FR-MYLANLABS-2019M1106594

PATIENT
  Age: 39 Year
  Sex: Female

DRUGS (6)
  1. VALPROIC ACID. [Interacting]
     Active Substance: VALPROIC ACID
     Dosage: 18.5 GRAM
  2. VALPROIC ACID. [Interacting]
     Active Substance: VALPROIC ACID
     Indication: PRODUCT USED FOR UNKNOWN INDICATION
     Dosage: 19 GRAM, TOTAL
     Route: 048
  3. QUETIAPINE. [Suspect]
     Active Substance: QUETIAPINE
     Indication: MAJOR DEPRESSION
     Dosage: 4 GRAM, TOTAL
     Route: 048
  4. DIAZEPAM. [Suspect]
     Active Substance: DIAZEPAM
     Indication: PRODUCT USED FOR UNKNOWN INDICATION
     Dosage: 100 MILLIGRAM, TOTAL
     Route: 048
  5. PROPANOLOL                         /00030002/ [Suspect]
     Active Substance: PROPRANOLOL HYDROCHLORIDE
     Indication: PRODUCT USED FOR UNKNOWN INDICATION
     Dosage: 400 MILLIGRAM, TOTAL (400 MG SINGLE)
     Route: 048
  6. ALPRAZOLAM. [Suspect]
     Active Substance: ALPRAZOLAM
     Indication: PRODUCT USED FOR UNKNOWN INDICATION
     Dosage: 20 MILLIGRAM, TOTAL
     Route: 048

REACTIONS (15)
  - Coma [Unknown]
  - Drug interaction [Unknown]
  - Intentional product misuse [Unknown]
  - Off label use [Unknown]
  - Product use issue [Unknown]
  - Lung disorder [Unknown]
  - Sinus rhythm [Unknown]
  - Electrocardiogram QRS complex shortened [Unknown]
  - Hypotension [Unknown]
  - Blood creatine phosphokinase increased [Unknown]
  - Heart rate decreased [Unknown]
  - Toxicity to various agents [Unknown]
  - Intentional overdose [Unknown]
  - Pneumonia aspiration [Unknown]
  - Blood pressure systolic decreased [Unknown]
